FAERS Safety Report 5774234-8 (Version None)
Quarter: 2008Q2

REPORT INFORMATION
  Report Type: 
  Country: None (occurrence: None)
  Receive Date: 20080616
  Receipt Date: 20080609
  Transmission Date: 20081010
  Serious: Yes (Hospitalization, Other)
  Sender: FDA-Public Use
  Company Number: BR-ASTRAZENECA-2003UW04741

PATIENT
  Age: 57 Year
  Sex: Female
  Weight: 112 kg

DRUGS (10)
  1. SYMBICORT [Suspect]
     Indication: ASTHMA
     Dosage: 160/4.5 UG
     Route: 055
     Dates: start: 20020101
  2. KEFLEX [Suspect]
     Dosage: 1000MG/QID
  3. HIDROCLORITIAZIDA [Concomitant]
     Indication: DIURETIC THERAPY
     Route: 048
     Dates: start: 20020101
  4. MONOCORDIL [Concomitant]
     Indication: HYPERTENSION
     Route: 048
     Dates: start: 20000101
  5. DIAZEPAN [Concomitant]
     Indication: SEDATIVE THERAPY
     Route: 048
  6. MALEATO DE ENALAPRIL [Concomitant]
     Indication: HYPERTENSION
     Route: 048
     Dates: start: 20020101
  7. ATENSINA [Concomitant]
     Indication: HYPERTENSION
     Route: 048
     Dates: start: 19980101
  8. LIPITOR [Concomitant]
     Indication: BLOOD TRIGLYCERIDES
     Route: 048
     Dates: start: 20050101
  9. SINVASTATINA [Concomitant]
     Indication: HYPERCHOLESTEROLAEMIA
     Route: 048
     Dates: start: 20050101
  10. ASPIRIN [Concomitant]
     Indication: ANTICOAGULANT THERAPY
     Route: 048
     Dates: start: 20050101

REACTIONS (9)
  - ASTHMA [None]
  - CONFUSIONAL STATE [None]
  - CONTUSION [None]
  - ERYSIPELAS [None]
  - GLAUCOMA [None]
  - MALAISE [None]
  - MYOCARDIAL ISCHAEMIA [None]
  - RETINAL DETACHMENT [None]
  - TACHYCARDIA [None]
